FAERS Safety Report 18210388 (Version 3)
Quarter: 2020Q4

REPORT INFORMATION
  Report Type: Spontaneous
  Country: NL (occurrence: NL)
  Receive Date: 20200829
  Receipt Date: 20201020
  Transmission Date: 20210113
  Serious: Yes (Disabling)
  Sender: FDA-Public Use
  Company Number: NL-ACCORD-197740

PATIENT
  Age: 64 Year
  Sex: Male

DRUGS (2)
  1. NITROGLYCERIN SDZ OROMUC SPRAY [Concomitant]
     Dosage: NITROGLYCERIN SPRAY SUBLING., STRENGTH: 0.4 MG, IF NECESSARY
     Dates: start: 20080718
  2. ITRACONAZOLE. [Suspect]
     Active Substance: ITRACONAZOLE
     Indication: ONYCHOMYCOSIS
     Dosage: STRENGTH: 100 MG, 2 TIMES DAILY 2 CAPSULES, PULSE THERAPY
     Dates: start: 20080827

REACTIONS (2)
  - Paraplegia [Not Recovered/Not Resolved]
  - Spinal cord haemorrhage [Not Recovered/Not Resolved]
